FAERS Safety Report 6299404-4 (Version None)
Quarter: 2009Q3

REPORT INFORMATION
  Report Type: 
  Country: None (occurrence: None)
  Receive Date: 20090803
  Receipt Date: 20090722
  Transmission Date: 20100115
  Serious: Yes (Hospitalization)
  Sender: FDA-Public Use
  Company Number: 2009PL000256

PATIENT
  Age: 72 Year
  Sex: Male

DRUGS (36)
  1. IMURAN [Suspect]
     Indication: RENAL DISORDER
     Dosage: 100 MG; PO
     Route: 048
     Dates: start: 20090309, end: 20090414
  2. VALCYTE [Suspect]
     Indication: ANTIVIRAL PROPHYLAXIS
     Dosage: 900 MG; PO
     Route: 048
     Dates: end: 20090430
  3. SEPTRA DS [Suspect]
     Indication: ANTIFUNGAL PROPHYLAXIS
     Dosage: 1 TAB; PO
     Route: 048
     Dates: start: 20090218, end: 20090414
  4. LEVOTHYROXINE SODIUM [Concomitant]
  5. OMEPRAZOLE [Concomitant]
  6. MESALMINE [Concomitant]
  7. TERAZOSIN HYDROCHLORIDE [Concomitant]
  8. VALPROIC ACID [Concomitant]
  9. LANTHANUM CARBONATE [Concomitant]
  10. PRANTOPRAZOLE SODIUM [Concomitant]
  11. LEVOFLOXACIN [Concomitant]
  12. ONDANSETRON [Concomitant]
  13. NYSTATIN [Concomitant]
  14. SEPTRA [Concomitant]
  15. FUROSEMIDE [Concomitant]
  16. ALBUMIN (HUMAN) [Concomitant]
  17. DIPHENHYDRAMINE HCL [Concomitant]
  18. ACETAMINOPHEN [Concomitant]
  19. METOPROLOL [Concomitant]
  20. MORPHINE SULFATE [Concomitant]
  21. VALGANCICLOVIR HCL [Concomitant]
  22. BUMETANIDE [Concomitant]
  23. TEMAZEPAM [Concomitant]
  24. HYDRALAZINE HCL [Concomitant]
  25. HALOPERIDOL [Concomitant]
  26. TOLTERODINE TARTRATE [Concomitant]
  27. PROGRAF [Concomitant]
  28. FOSAMAX [Concomitant]
  29. SYNTHROID [Concomitant]
  30. DETROL /01350201/ [Concomitant]
  31. LOPRESSOR [Concomitant]
  32. AMBIEN [Concomitant]
  33. PENTASA [Concomitant]
  34. MAGNESIUM OXIDE [Concomitant]
  35. PROCRIT /00928302/ [Concomitant]
  36. THYMOGLOBULIN [Concomitant]

REACTIONS (13)
  - ANAEMIA VITAMIN B12 DEFICIENCY [None]
  - BK VIRUS INFECTION [None]
  - CLOSTRIDIAL INFECTION [None]
  - COMPLICATIONS OF TRANSPLANTED KIDNEY [None]
  - CULTURE STOOL POSITIVE [None]
  - DIALYSIS [None]
  - DIARRHOEA [None]
  - ENCEPHALOPATHY [None]
  - FAILURE TO THRIVE [None]
  - HYPOTHYROIDISM [None]
  - NEPHROGENIC ANAEMIA [None]
  - PANCREATITIS [None]
  - RENAL TUBULAR NECROSIS [None]
